FAERS Safety Report 8440388-8 (Version None)
Quarter: 2012Q2

REPORT INFORMATION
  Report Type: 
  Country: None (occurrence: None)
  Receive Date: 20120615
  Receipt Date: 20120601
  Transmission Date: 20120825
  Serious: Yes (Hospitalization)
  Sender: FDA-Public Use
  Company Number: NL-ROCHE-786080

PATIENT
  Sex: Female
  Weight: 83 kg

DRUGS (13)
  1. LISINOPRIL [Concomitant]
     Indication: MYOCARDIAL INFARCTION
     Dosage: LAST DOSE PRIOR TO SAE 20 APRIL 2011
     Route: 048
  2. ASCAL [Concomitant]
     Indication: THROMBOSIS
     Dosage: LAST DOSE PRIOR TO SAE 28 APRIL 2011
     Route: 048
  3. TOLBUTAMIDE [Concomitant]
     Indication: DIABETES MELLITUS
     Dosage: LAST DOSE PRIOR TO SAE 28 APRIL 2011
     Route: 048
  4. MABTHERA [Suspect]
     Indication: DIFFUSE LARGE B-CELL LYMPHOMA
     Dosage: LAST DOSE PRIOR TO SAE 19 APRIL 2010 - CYCLE 3 OF INDUCTION PHASE.
     Route: 042
  5. DOXORUBICIN HYDROCHLORIDE [Suspect]
     Indication: DIFFUSE LARGE B-CELL LYMPHOMA
     Dosage: LAST DOSE PRIOR TO SAE 19 APRIL 2011 - CYCLE 3 OF INDUCTION PHASE.
     Route: 042
  6. VINCRISTINE SULFATE [Suspect]
     Indication: DIFFUSE LARGE B-CELL LYMPHOMA
     Dosage: LAST DOSE PRIOR TO SAE 19 APRIL 2011 - CYCLE 3 OF INDUCTION PHASE.
     Route: 042
  7. CLOMIPRAMINE HCL [Concomitant]
     Indication: DEPRESSION
     Dosage: DRUG REPORTED AS CLOMEPRAMIC LAST DOSE  28 APRIL 2011
     Route: 048
  8. CYCLOPHOSPHAMIDE [Suspect]
     Indication: DIFFUSE LARGE B-CELL LYMPHOMA
     Dosage: LAST DOSE PRIOR TO SAE 19 APRIL 2011 - CYCLE 3 OF INDUCTION PHASE.
     Route: 042
  9. PREDNISONE TAB [Suspect]
     Indication: DIFFUSE LARGE B-CELL LYMPHOMA
     Dosage: LAST DOSE PRIOR TO SAE 23 APRIL 2010 - CYCLE 3 OF INDUCTION PHASE.
     Route: 048
  10. METOPROLOL SUCCINATE [Concomitant]
     Indication: ANGINA PECTORIS
     Dosage: DRUG REPORTED AS METOPROLOL RETAICT LAST DOSE PRIOR TO SAE 28 APRIL 2011
     Route: 048
  11. SIMVASTATIN [Concomitant]
     Dosage: DRUG REPORTED AS SIMVASIAKNE LAST DOSE PRIOR TO SAE 28 APRIL 2011
     Route: 048
  12. FILGRASTIM [Suspect]
     Indication: DIFFUSE LARGE B-CELL LYMPHOMA
     Dosage: LAST DOSE PRIOR TO SAE 20 APRIL 2011 - CYCLE 3 OF INDUCTION PHASE.
     Route: 058
  13. AMLODIPINE BESYLATE [Concomitant]
     Indication: ANGINA PECTORIS

REACTIONS (1)
  - DEEP VEIN THROMBOSIS [None]
